FAERS Safety Report 6937799-6 (Version None)
Quarter: 2010Q3

REPORT INFORMATION
  Report Type: 
  Country: None (occurrence: None)
  Receive Date: 20100820
  Receipt Date: 20100820
  Transmission Date: 20110219
  Serious: Yes (Other)
  Sender: FDA-Public Use
  Company Number: None

PATIENT
  Age: 62 Year
  Sex: Female

DRUGS (2)
  1. NOVOLIN N [Suspect]
     Indication: DIABETES MELLITUS
     Dosage: 18 U AM INJ.
     Dates: start: 20060101
  2. HUMULIN 50/50 [Suspect]
     Dosage: 28 U PM INJ
     Dates: start: 20100101

REACTIONS (8)
  - BLOOD GLUCOSE INCREASED [None]
  - EYE IRRITATION [None]
  - HYPERSENSITIVITY [None]
  - IMMUNODEFICIENCY [None]
  - INFLAMMATION [None]
  - LACRIMAL DISORDER [None]
  - MALAISE [None]
  - PRODUCT QUALITY ISSUE [None]
